FAERS Safety Report 8573347-5 (Version None)
Quarter: 2012Q3

REPORT INFORMATION
  Report Type: 
  Country: None (occurrence: None)
  Receive Date: 20120806
  Receipt Date: 20120727
  Transmission Date: 20120928
  Serious: Yes (Other)
  Sender: FDA-Public Use
  Company Number: JP-VERTEX PHARMACEUTICALS INC.-AE-2012-009242

PATIENT
  Age: 46 Year
  Sex: Male

DRUGS (7)
  1. REBETOL [Concomitant]
     Route: 048
     Dates: start: 20120529, end: 20120625
  2. PEG-INTRON [Concomitant]
     Indication: HEPATITIS C
     Route: 058
     Dates: start: 20120424, end: 20120514
  3. PEG-INTRON [Concomitant]
     Route: 058
     Dates: start: 20120515, end: 20120604
  4. TELAVIC (TELAPREVIR) [Suspect]
     Indication: HEPATITIS C
     Route: 048
     Dates: start: 20120424, end: 20120716
  5. REBETOL [Concomitant]
     Route: 048
     Dates: start: 20120626
  6. REBETOL [Concomitant]
     Indication: HEPATITIS C
     Route: 048
     Dates: start: 20120424, end: 20120528
  7. PEG-INTRON [Concomitant]
     Route: 058
     Dates: start: 20120605

REACTIONS (4)
  - HYPERURICAEMIA [None]
  - RASH [None]
  - NEUTROPHIL COUNT DECREASED [None]
  - ANAEMIA [None]
